FAERS Safety Report 24680131 (Version 1)
Quarter: 2024Q4

REPORT INFORMATION
  Report Type: Spontaneous
  Country: US (occurrence: US)
  Receive Date: 20241129
  Receipt Date: 20241129
  Transmission Date: 20250115
  Serious: Yes (Life-Threatening, Hospitalization, Other)
  Sender: BRACCO
  Company Number: US-BRACCO-2023US06889

PATIENT
  Age: 81 Year
  Sex: Male

DRUGS (3)
  1. LUMASON [Suspect]
     Active Substance: SULFUR HEXAFLUORIDE
     Indication: Echocardiogram
     Dosage: 2 ML
     Route: 042
     Dates: start: 20231219, end: 20231219
  2. LUMASON [Suspect]
     Active Substance: SULFUR HEXAFLUORIDE
     Indication: Echocardiogram
     Dosage: 2 ML
     Route: 042
     Dates: start: 20231219, end: 20231219
  3. LUMASON [Suspect]
     Active Substance: SULFUR HEXAFLUORIDE
     Indication: Echocardiogram
     Dosage: 2 ML
     Route: 042
     Dates: start: 20231219, end: 20231219

REACTIONS (4)
  - Chest pain [Unknown]
  - Hypotension [Unknown]
  - Cold sweat [Unknown]
  - Vomiting [Unknown]

NARRATIVE: CASE EVENT DATE: 20231219
